FAERS Safety Report 11521644 (Version 1)
Quarter: 2015Q3

REPORT INFORMATION
  Report Type: Spontaneous
  Country: US (occurrence: US)
  Receive Date: 20150918
  Receipt Date: 20150918
  Transmission Date: 20151125
  Serious: No
  Sender: FDA-Public Use
  Company Number: US-ROCHE-702845

PATIENT
  Age: 40 Year
  Sex: Male
  Weight: 49.9 kg

DRUGS (2)
  1. COPEGUS [Suspect]
     Active Substance: RIBAVIRIN
     Indication: HEPATITIS C
     Dosage: IN DIVIDED DOSES
     Route: 048
  2. PEGASYS [Suspect]
     Active Substance: PEGINTERFERON ALFA-2A
     Indication: HEPATITIS C
     Dosage: FORM: PRE-FILLED SYRINGE
     Route: 065

REACTIONS (4)
  - Pyrexia [Unknown]
  - Oedema peripheral [Not Recovered/Not Resolved]
  - Pain [Unknown]
  - Toothache [Unknown]

NARRATIVE: CASE EVENT DATE: 20100504
